FAERS Safety Report 5511580-7 (Version None)
Quarter: 2007Q4

REPORT INFORMATION
  Report Type: 
  Country: None (occurrence: None)
  Receive Date: 20071109
  Receipt Date: 20071031
  Transmission Date: 20080405
  Serious: Yes (Hospitalization)
  Sender: FDA-Public Use
  Company Number: AT-ABBOTT-07P-009-0423038-00

PATIENT
  Age: 63 Year
  Sex: Male

DRUGS (5)
  1. DEPAKENE [Suspect]
     Indication: DRUG USE FOR UNKNOWN INDICATION
     Route: 048
     Dates: start: 20070512, end: 20070514
  2. DEPAKENE [Suspect]
     Route: 048
     Dates: start: 20070511, end: 20070511
  3. DEPAKENE [Suspect]
     Route: 048
     Dates: start: 20070515, end: 20070515
  4. DEPAKENE [Suspect]
     Route: 048
     Dates: start: 20070516, end: 20070516
  5. HALOPERIDOL [Concomitant]
     Indication: DRUG USE FOR UNKNOWN INDICATION
     Route: 048
     Dates: start: 20070511, end: 20070515

REACTIONS (4)
  - DISORIENTATION [None]
  - HYPERAMMONAEMIA [None]
  - MANIA [None]
  - SOMNOLENCE [None]
